FAERS Safety Report 6604140-8 (Version None)
Quarter: 2010Q1

REPORT INFORMATION
  Report Type: 
  Country: None (occurrence: None)
  Receive Date: 20100226
  Receipt Date: 20090608
  Transmission Date: 20100710
  Serious: No
  Sender: FDA-Public Use
  Company Number: A0789398A

PATIENT
  Age: 18 Year
  Sex: Male

DRUGS (3)
  1. LAMOTRIGINE [Suspect]
     Indication: BIPOLAR DISORDER
     Route: 048
  2. LUVOX [Concomitant]
  3. MARIJUANA [Concomitant]

REACTIONS (3)
  - ANGER [None]
  - INTERMITTENT EXPLOSIVE DISORDER [None]
  - MOOD ALTERED [None]
